FAERS Safety Report 4339676-6 (Version None)
Quarter: 2004Q1

REPORT INFORMATION
  Report Type: 
  Country: None (occurrence: None)
  Receive Date: 20040329
  Receipt Date: 20031223
  Transmission Date: 20041129
  Serious: No
  Sender: FDA-Public Use
  Company Number: 03P-163-0245735-00

PATIENT
  Age: 74 Year
  Sex: Female
  Weight: 113.3993 kg

DRUGS (13)
  1. HUMIRA [Suspect]
     Indication: RHEUMATOID ARTHRITIS
     Dosage: 40 MG, 1 IN 2 WK, SUBCUTANEOUS
     Route: 058
     Dates: start: 20031105
  2. PREDNISONE [Concomitant]
  3. HYDROCODNE [Concomitant]
  4. LISINOPRIL [Concomitant]
  5. ALENDRONATE SODIUM [Concomitant]
  6. CALCIUM [Concomitant]
  7. OXYBUTYNIN [Concomitant]
  8. FLUOXETINE [Concomitant]
  9. ISONIAZID [Concomitant]
  10. HYDROXYCHLOROQUINE SULFATE [Concomitant]
  11. MIRTAZAPINE [Concomitant]
  12. BERETIDE MITE [Concomitant]
  13. ALBUTEROL SULFATE [Concomitant]

REACTIONS (2)
  - DYSPNOEA [None]
  - URTICARIA [None]
